FAERS Safety Report 4823731-8 (Version None)
Quarter: 2005Q4

REPORT INFORMATION
  Report Type: 
  Country: None (occurrence: None)
  Receive Date: 20051107
  Receipt Date: 20051024
  Transmission Date: 20060501
  Serious: Yes (Death)
  Sender: FDA-Public Use
  Company Number: GXKR2005GB01864

PATIENT
  Sex: Female

DRUGS (9)
  1. FUROSEMIDE [Suspect]
     Dosage: 40 MG, QD
  2. TRAMADOL HCL [Suspect]
     Dosage: 50 MG, TID
  3. ATROVENT [Suspect]
     Indication: CHRONIC OBSTRUCTIVE PULMONARY DISEASE
     Dosage: 500 MCG, QID, RESPIRATORY
     Route: 055
  4. AMINOPHYLLIN [Suspect]
     Dosage: 225 MG, QD
  5. ALBUTEROL [Suspect]
     Dosage: 2 PUFFS, QD, WHEN REQUIRED, RESPIRATORY
     Route: 055
  6. CARBOCISTEINE                (CARBOCISTEINE) [Suspect]
     Dosage: 375 MG, TID
  7. LEVOFLOXACIN [Suspect]
     Dosage: 500 MG, BID
  8. PREDNISONE [Suspect]
     Dosage: 5 MG, QD
  9. ALBUTEROL [Concomitant]

REACTIONS (1)
  - INFECTIVE EXACERBATION OF CHRONIC OBSTRUCTIVE AIRWAYS DISEASE [None]
